FAERS Safety Report 14612991 (Version 1)
Quarter: 2018Q1

REPORT INFORMATION
  Report Type: Spontaneous
  Country: US (occurrence: US)
  Receive Date: 20180308
  Receipt Date: 20180308
  Transmission Date: 20180509
  Serious: Yes (Hospitalization, Other)
  Sender: FDA-Public Use
  Company Number: US-ABBVIE-18K-163-2276156-00

PATIENT

DRUGS (1)
  1. HUMIRA [Suspect]
     Active Substance: ADALIMUMAB
     Indication: MATERNAL EXPOSURE TIMING UNSPECIFIED
     Route: 064

REACTIONS (8)
  - Renal aplasia [Not Recovered/Not Resolved]
  - Premature baby [Unknown]
  - Blood sodium decreased [Recovering/Resolving]
  - Foetal exposure during pregnancy [Unknown]
  - Oedematous kidney [Recovering/Resolving]
  - Blood potassium increased [Recovering/Resolving]
  - Urinary tract infection bacterial [Recovering/Resolving]
  - Hypoaldosteronism [Not Recovered/Not Resolved]

NARRATIVE: CASE EVENT DATE: 201709
